FAERS Safety Report 23969673 (Version 2)
Quarter: 2024Q3

REPORT INFORMATION
  Report Type: Spontaneous
  Country: BR (occurrence: BR)
  Receive Date: 20240613
  Receipt Date: 20240720
  Transmission Date: 20241016
  Serious: Yes (Other)
  Sender: CELLTRION
  Company Number: BR-CELLTRION INC.-2024BR013849

PATIENT

DRUGS (3)
  1. INFLIXIMAB [Suspect]
     Active Substance: INFLIXIMAB
     Indication: Crohn^s disease
     Dosage: 4 AMPOULES EVERY 60 DAYS
     Route: 042
     Dates: start: 20240129
  2. INFLIXIMAB [Suspect]
     Active Substance: INFLIXIMAB
     Dosage: LOADING DOSES WITH AN INTERVAL OF 15 AND THEN 30 DAYS
     Route: 042
  3. AZATHIOPRINE [Concomitant]
     Active Substance: AZATHIOPRINE
     Indication: Crohn^s disease
     Dosage: 1 PILL A DAY (STOP DATE: 60 DAYS AGO)
     Route: 048

REACTIONS (3)
  - Wrist fracture [Recovered/Resolved]
  - Intentional dose omission [Recovered/Resolved]
  - Intentional product use issue [Unknown]

NARRATIVE: CASE EVENT DATE: 20240401
